FAERS Safety Report 7932855 (Version 2)
Quarter: 2014Q2

REPORT INFORMATION
  Report Type: Spontaneous
  Country: US (occurrence: US)
  Receive Date: 20110506
  Receipt Date: 20140417
  Transmission Date: 20141212
  Serious: Yes (Hospitalization, Other)
  Sender: FDA-Public Use
  Company Number: US-ELI_LILLY_AND_COMPANY-US201104007714

PATIENT
  Sex: Female

DRUGS (6)
  1. HUMALOG LISPRO [Suspect]
     Indication: TYPE 1 DIABETES MELLITUS
     Dosage: 5 U, EACH EVENING
     Route: 065
     Dates: start: 1990
  2. HUMALOG LISPRO [Suspect]
     Dosage: 5 U, OTHER
     Route: 065
     Dates: start: 1990
  3. HUMALOG LISPRO [Suspect]
     Dosage: 7 U, EACH EVENING
     Route: 065
     Dates: start: 1990
  4. HUMALOG LISPRO [Suspect]
     Dosage: UNK UNK, PRN
     Route: 065
     Dates: start: 1990
  5. HUMALOG LISPRO [Suspect]
     Dosage: 5 U, PRN
     Route: 065
  6. LANTUS [Concomitant]
     Dosage: UNK

REACTIONS (10)
  - Necrotising fasciitis [Recovered/Resolved]
  - Coma [Recovered/Resolved]
  - Myocardial infarction [Recovered/Resolved]
  - Myocardial infarction [Recovered/Resolved]
  - Blindness [Recovered/Resolved]
  - Malaise [Unknown]
  - Cholecystitis [Recovered/Resolved]
  - Memory impairment [Not Recovered/Not Resolved]
  - Angina pectoris [Unknown]
  - Retinopathy [Unknown]
